FAERS Safety Report 14901020 (Version 1)
Quarter: 2018Q2

REPORT INFORMATION
  Report Type: Report from Study
  Country: US (occurrence: US)
  Receive Date: 20180516
  Receipt Date: 20180516
  Transmission Date: 20180711
  Serious: No
  Sender: FDA-Public Use
  Company Number: US-ROCHE-2123574

PATIENT
  Sex: Male

DRUGS (1)
  1. OCREVUS [Suspect]
     Active Substance: OCRELIZUMAB
     Indication: MULTIPLE SCLEROSIS
     Dosage: ONGOING : YES
     Route: 065

REACTIONS (4)
  - Pain [Recovered/Resolved]
  - Influenza [Recovered/Resolved]
  - Bone pain [Recovered/Resolved]
  - Headache [Recovered/Resolved]
